FAERS Safety Report 4454768-9 (Version None)
Quarter: 2004Q3

REPORT INFORMATION
  Report Type: 
  Country: None (occurrence: None)
  Receive Date: 20040920
  Receipt Date: 20040914
  Transmission Date: 20050211
  Serious: Yes (Death)
  Sender: FDA-Public Use
  Company Number: 2004UW19231

PATIENT
  Age: 37 Year
  Sex: Female
  Weight: 90.7194 kg

DRUGS (2)
  1. CRESTOR [Suspect]
     Dosage: 10 MG PO
     Route: 048
  2. RISPERDAL [Concomitant]

REACTIONS (1)
  - DEATH [None]
